FAERS Safety Report 8200738-4 (Version None)
Quarter: 2012Q1

REPORT INFORMATION
  Report Type: 
  Country: None (occurrence: None)
  Receive Date: 20120307
  Receipt Date: 20120221
  Transmission Date: 20120608
  Serious: Yes (Hospitalization)
  Sender: FDA-Public Use
  Company Number: SAN_00056_2012

PATIENT
  Age: 62 Year
  Sex: Female

DRUGS (6)
  1. METFORMIN HCL [Suspect]
     Indication: TYPE 2 DIABETES MELLITUS
     Dosage: (850 MG TID)
  2. ATORVASTATIN [Concomitant]
  3. INSULIN GLARGINE [Concomitant]
  4. OLMESARTAN MEDOXOMIL [Concomitant]
  5. INSULIN ASPART [Concomitant]
  6. AMLODIPINE [Concomitant]

REACTIONS (14)
  - RENAL FAILURE ACUTE [None]
  - DIARRHOEA [None]
  - ASPARTATE AMINOTRANSFERASE INCREASED [None]
  - VOMITING [None]
  - ALANINE AMINOTRANSFERASE INCREASED [None]
  - BLOOD CULTURE POSITIVE [None]
  - METABOLIC ACIDOSIS [None]
  - LACTIC ACIDOSIS [None]
  - STREPTOCOCCUS TEST POSITIVE [None]
  - ABDOMINAL PAIN [None]
  - NAUSEA [None]
  - DISORIENTATION [None]
  - BLOOD PRESSURE INCREASED [None]
  - INTERNATIONAL NORMALISED RATIO DECREASED [None]
